FAERS Safety Report 8422949-5 (Version None)
Quarter: 2012Q2

REPORT INFORMATION
  Report Type: 
  Country: None (occurrence: None)
  Receive Date: 20120608
  Receipt Date: 20120528
  Transmission Date: 20120825
  Serious: Yes (Death)
  Sender: FDA-Public Use
  Company Number: JP-GLAXOSMITHKLINE-B0804204A

PATIENT
  Sex: Female

DRUGS (10)
  1. LEVOFLOXACIN [Concomitant]
     Indication: GASTROENTERITIS BACTERIAL
     Dosage: 3IUAX PER DAY
     Route: 048
     Dates: start: 20120315, end: 20120315
  2. SOLDEM [Concomitant]
     Indication: PYREXIA
     Dosage: 1000ML PER DAY
     Route: 042
     Dates: start: 20120316, end: 20120316
  3. EXACIN [Concomitant]
     Indication: GASTROENTERITIS BACTERIAL
     Dosage: 1IUAX PER DAY
     Route: 042
     Dates: start: 20120316, end: 20120316
  4. MUCOSTA [Concomitant]
     Indication: GASTROENTERITIS BACTERIAL
     Dosage: 3IUAX PER DAY
     Route: 048
     Dates: start: 20120315, end: 20120315
  5. SOLDEM [Concomitant]
     Indication: GASTROENTERITIS BACTERIAL
     Dosage: 500ML PER DAY
     Route: 042
     Dates: start: 20120315, end: 20120315
  6. CEFTRIAXONE SODIUM [Concomitant]
     Indication: PYREXIA
     Dosage: 2G PER DAY
     Route: 042
     Dates: start: 20120316, end: 20120316
  7. RELENZA [Suspect]
     Indication: ANTIVIRAL PROPHYLAXIS
     Dosage: 10MG PER DAY
     Route: 055
     Dates: start: 20120316, end: 20120316
  8. PELEX [Concomitant]
     Indication: GASTROENTERITIS BACTERIAL
     Dosage: 3IUAX PER DAY
     Route: 048
     Dates: start: 20120315, end: 20120315
  9. UNKNOWN MEDICATION [Concomitant]
     Indication: GASTROENTERITIS BACTERIAL
     Dosage: 3IUAX PER DAY
     Route: 048
     Dates: start: 20120315, end: 20120315
  10. ACETAMINOPHEN [Concomitant]
     Indication: GASTROENTERITIS BACTERIAL
     Dosage: 3IUAX PER DAY
     Route: 048
     Dates: start: 20120315, end: 20120315

REACTIONS (6)
  - PULSE ABSENT [None]
  - ANAPHYLACTIC SHOCK [None]
  - DYSPNOEA [None]
  - JOINT STIFFNESS [None]
  - DEPRESSED LEVEL OF CONSCIOUSNESS [None]
  - HYPERSENSITIVITY [None]
